FAERS Safety Report 6784105-6 (Version None)
Quarter: 2010Q2

REPORT INFORMATION
  Report Type: 
  Country: None (occurrence: None)
  Receive Date: 20100617
  Receipt Date: 20100603
  Transmission Date: 20101027
  Serious: Yes (Hospitalization)
  Sender: FDA-Public Use
  Company Number: 1000014454

PATIENT
  Age: 84 Year
  Sex: Male

DRUGS (8)
  1. MEMANTINE HCL [Suspect]
     Indication: DEMENTIA ALZHEIMER'S TYPE
     Dosage: 20 MG (10 MG, 2 IN 1 D),ORAL
     Route: 048
  2. RISPERDAL [Suspect]
     Indication: ANXIETY
     Dosage: 1.5 MG (1.5 MG, 1 IN 1 D),ORAL
     Route: 048
     Dates: end: 20100114
  3. RISPERDAL [Suspect]
     Indication: ANXIETY
     Dosage: 1 MG (1 MG, 1 IN 1 D), ORAL
     Route: 048
     Dates: start: 20100115
  4. SERESTA (TABLETS) [Suspect]
     Indication: ANXIETY
     Dosage: 20 MG, (10 MG, 2 IN 1 D), ORAL
     Route: 048
     Dates: end: 20100114
  5. IMOVANE (TABLETS) [Suspect]
     Indication: INSOMNIA
     Dosage: 7.5 MG (7.5 MG, 1 IN 1 D),ORAL
     Route: 048
  6. OMEXEL [Concomitant]
  7. DAFALGAN [Concomitant]
  8. TANAKAN [Concomitant]

REACTIONS (12)
  - ABNORMAL BEHAVIOUR [None]
  - AGITATION [None]
  - ALTERED STATE OF CONSCIOUSNESS [None]
  - APATHY [None]
  - APHASIA [None]
  - ASTHENIA [None]
  - DELUSION [None]
  - DISORIENTATION [None]
  - ECCHYMOSIS [None]
  - EXCORIATION [None]
  - FALL [None]
  - INDIFFERENCE [None]
